FAERS Safety Report 16370117 (Version 1)
Quarter: 2019Q2

REPORT INFORMATION
  Report Type: Spontaneous
  Country: FR (occurrence: FR)
  Receive Date: 20190530
  Receipt Date: 20190530
  Transmission Date: 20190711
  Serious: Yes (Hospitalization)
  Sender: FDA-Public Use
  Company Number: FR-SA-2019SA146296

PATIENT
  Age: 54 Year
  Sex: Male

DRUGS (15)
  1. JOSAMYCIN [Suspect]
     Active Substance: JOSAMYCIN
     Indication: EAR INFECTION
     Route: 048
     Dates: start: 20190423, end: 20190429
  2. ATORVASTATINE ZENTIVA [Suspect]
     Active Substance: ATORVASTATIN
     Indication: CARDIOVASCULAR EVENT PROPHYLAXIS
     Route: 048
     Dates: start: 201602
  3. BETAMETHASONE. [Suspect]
     Active Substance: BETAMETHASONE
     Indication: RHINITIS
  4. APIXABAN [Suspect]
     Active Substance: APIXABAN
     Indication: CEREBROVASCULAR ACCIDENT PROPHYLAXIS
     Route: 048
     Dates: start: 201602
  5. OXOMEMAZINE ZENTIVA [Suspect]
     Active Substance: OXOMEMAZINE
     Indication: COUGH
     Dosage: UNK
     Route: 048
     Dates: start: 20190423, end: 20190428
  6. BETAMETHASONE. [Suspect]
     Active Substance: BETAMETHASONE
     Indication: EAR INFECTION
     Route: 048
     Dates: start: 20190423, end: 20190427
  7. JOSAMYCIN [Suspect]
     Active Substance: JOSAMYCIN
     Indication: PHARYNGITIS
  8. ZOLPIDEM [Suspect]
     Active Substance: ZOLPIDEM\ZOLPIDEM TARTRATE
     Indication: INSOMNIA
     Dosage: UNK
     Route: 048
     Dates: start: 20180223
  9. DESLORATADINE ZENTIVA [Suspect]
     Active Substance: DESLORATADINE
     Indication: RHINITIS ALLERGIC
     Route: 048
     Dates: start: 201602
  10. ESOMEPRAZOLE WINTHROP [Suspect]
     Active Substance: ESOMEPRAZOLE MAGNESIUM
     Indication: GASTROOESOPHAGEAL REFLUX DISEASE
     Route: 048
     Dates: start: 201602
  11. BETAMETHASONE. [Suspect]
     Active Substance: BETAMETHASONE
     Indication: PHARYNGITIS
  12. NADOLOL. [Suspect]
     Active Substance: NADOLOL
     Indication: HYPERTROPHIC CARDIOMYOPATHY
     Route: 048
     Dates: start: 201706
  13. JOSAMYCIN [Suspect]
     Active Substance: JOSAMYCIN
     Indication: RHINITIS
  14. METFORMIN HYDROCHLORIDE. [Suspect]
     Active Substance: METFORMIN HYDROCHLORIDE
     Indication: TYPE 2 DIABETES MELLITUS
     Route: 048
     Dates: start: 201602, end: 20190504
  15. FUROSEMIDE WINTHROP [Suspect]
     Active Substance: FUROSEMIDE
     Indication: OEDEMA DUE TO CARDIAC DISEASE
     Route: 048
     Dates: start: 201602

REACTIONS (1)
  - Lipase increased [Recovering/Resolving]

NARRATIVE: CASE EVENT DATE: 20190504
